FAERS Safety Report 5095835-9 (Version None)
Quarter: 2006Q3

REPORT INFORMATION
  Report Type: 
  Country: None (occurrence: None)
  Receive Date: 20060905
  Receipt Date: 20060901
  Transmission Date: 20061208
  Serious: Yes (Hospitalization)
  Sender: FDA-Public Use
  Company Number: GB-BRISTOL-MYERS SQUIBB COMPANY-13495353

PATIENT
  Age: 49 Year
  Sex: Female
  Weight: 91 kg

DRUGS (3)
  1. PACLITAXEL [Suspect]
     Indication: BREAST CANCER
     Dates: start: 20060823, end: 20060823
  2. GEMCITABINE [Suspect]
     Indication: BREAST CANCER
     Dates: start: 20060823, end: 20060823
  3. METOCLOPRAMIDE [Concomitant]
     Indication: NAUSEA
     Route: 048
     Dates: start: 20060801

REACTIONS (2)
  - NEUTROPENIA [None]
  - PYREXIA [None]
